FAERS Safety Report 18834422 (Version 1)
Quarter: 2021Q1

REPORT INFORMATION
  Report Type: Spontaneous
  Country: US (occurrence: US)
  Receive Date: 20210203
  Receipt Date: 20210203
  Transmission Date: 20210419
  Serious: No
  Sender: FDA-Public Use
  Company Number: US-009507513-2012USA010369

PATIENT
  Sex: Female

DRUGS (1)
  1. ETONOGESTREL (+) ETHINYL ESTRADIOL [Suspect]
     Active Substance: ETHINYL ESTRADIOL\ETONOGESTREL
     Indication: MENSTRUAL CYCLE MANAGEMENT
     Dosage: 1 RING, POTENCY: ETONOGESTREL/ETHINYL ESTRADIOL: 2.7 MILLIGRAM/11.7 MILLIGRAM
     Route: 067

REACTIONS (11)
  - Mood swings [Unknown]
  - Depression [Unknown]
  - Anxiety [Unknown]
  - Fatigue [Unknown]
  - Insomnia [Unknown]
  - Product use in unapproved indication [Unknown]
  - Metrorrhagia [Unknown]
  - Muscle spasms [Unknown]
  - Menorrhagia [Unknown]
  - Premenstrual syndrome [Unknown]
  - Drug ineffective for unapproved indication [Unknown]
